FAERS Safety Report 8866203 (Version 3)
Quarter: 2013Q1

REPORT INFORMATION
  Report Type: Spontaneous
  Country: US (occurrence: US)
  Receive Date: 20121025
  Receipt Date: 20130301
  Transmission Date: 20140127
  Serious: Yes (Hospitalization)
  Sender: FDA-Public Use
  Company Number: US-009507513-1210USA009826

PATIENT
  Sex: 0

DRUGS (3)
  1. VICTRELIS [Suspect]
     Route: 048
  2. PEGINTERFERON ALFA-2B [Suspect]
  3. RIBAVIRIN [Suspect]
     Route: 048

REACTIONS (2)
  - Osteomyelitis [Unknown]
  - Hepatitis C RNA increased [Unknown]
